FAERS Safety Report 25900194 (Version 3)
Quarter: 2025Q4

REPORT INFORMATION
  Report Type: Spontaneous
  Country: US (occurrence: US)
  Receive Date: 20251009
  Receipt Date: 20251219
  Transmission Date: 20260117
  Serious: Yes (Other)
  Sender: MERCK SHARP & DOHME LLC
  Company Number: US-009507513-2334410

PATIENT
  Sex: Female
  Weight: 60.3 kg

DRUGS (32)
  1. SOTATERCEPT [Suspect]
     Active Substance: SOTATERCEPT
     Indication: Product used for unknown indication
     Dates: end: 2025
  2. SOTATERCEPT [Suspect]
     Active Substance: SOTATERCEPT
  3. SOTATERCEPT [Suspect]
     Active Substance: SOTATERCEPT
  4. SOTATERCEPT [Suspect]
     Active Substance: SOTATERCEPT
  5. REMODULIN [Suspect]
     Active Substance: TREPROSTINIL
     Indication: Pulmonary arterial hypertension
     Dosage: CONCENTRATION 2.5 MG/ML
     Route: 041
     Dates: start: 20241018
  6. REMODULIN [Suspect]
     Active Substance: TREPROSTINIL
     Indication: Pulmonary arterial hypertension
     Dosage: DOSE 74 NG/KG/MIN
     Dates: start: 20251128
  7. MIDODRINE HYDROCHLORIDE [Concomitant]
     Active Substance: MIDODRINE HYDROCHLORIDE
  8. ELIQUIS [Concomitant]
     Active Substance: APIXABAN
  9. PANTOPRAZOLE SODIUM [Concomitant]
     Active Substance: PANTOPRAZOLE SODIUM
     Dates: end: 2025
  10. ASCORBIC ACID [Concomitant]
     Active Substance: ASCORBIC ACID
  11. SODIUM CHLORIDE [Concomitant]
     Active Substance: SODIUM CHLORIDE
  12. FERROUS SULFATE [Concomitant]
     Active Substance: FERROUS SULFATE
  13. SILDENAFIL [Concomitant]
     Active Substance: SILDENAFIL
  14. CLOPIDOGREL [Concomitant]
     Active Substance: CLOPIDOGREL BISULFATE
  15. VITAMIN D [Concomitant]
     Active Substance: VITAMIN D NOS
  16. LIPITOR [Concomitant]
     Active Substance: ATORVASTATIN CALCIUM
  17. POTASSIUM CHLORIDE [Concomitant]
     Active Substance: POTASSIUM CHLORIDE
  18. VITAMINS [Concomitant]
     Active Substance: VITAMINS
  19. CALCIUM [Concomitant]
     Active Substance: CALCIUM
  20. SOTALOL [Concomitant]
     Active Substance: SOTALOL
  21. OXYGEN [Concomitant]
     Active Substance: OXYGEN
  22. VITAMIN B12 [Concomitant]
     Active Substance: CYANOCOBALAMIN
  23. BUMETANIDE [Concomitant]
     Active Substance: BUMETANIDE
  24. DIGOXIN [Concomitant]
     Active Substance: DIGOXIN
  25. MAGNESIUM [Concomitant]
     Active Substance: MAGNESIUM
  26. ACETAMINOPHEN [Concomitant]
     Active Substance: ACETAMINOPHEN
  27. FUROSEMIDE [Concomitant]
     Active Substance: FUROSEMIDE
  28. COLLAGEN [Concomitant]
     Active Substance: COLLAGEN
  29. AMBRISENTAN [Concomitant]
     Active Substance: AMBRISENTAN
  30. METHIMAZOLE [Concomitant]
     Active Substance: METHIMAZOLE
  31. SPIRONOLACTONE AND HYDROCHLOROTHIAZIDE [Concomitant]
     Active Substance: HYDROCHLOROTHIAZIDE\SPIRONOLACTONE
  32. MINERALS\VITAMINS [Concomitant]
     Active Substance: MINERALS\VITAMINS

REACTIONS (1)
  - Iron deficiency anaemia [Unknown]
